FAERS Safety Report 26114599 (Version 2)
Quarter: 2025Q4

REPORT INFORMATION
  Report Type: Spontaneous
  Country: US (occurrence: US)
  Receive Date: 20251202
  Receipt Date: 20251212
  Transmission Date: 20260118
  Serious: No
  Sender: TEVA
  Company Number: US-TEVA-VS-3396748

PATIENT
  Age: 79 Year
  Sex: Female

DRUGS (2)
  1. BUPRENORPHINE [Suspect]
     Active Substance: BUPRENORPHINE
     Indication: Pain
     Dosage: 20MCG/HR
     Route: 062
  2. BUPRENORPHINE [Suspect]
     Active Substance: BUPRENORPHINE
     Dosage: 5MCG/HR
     Route: 062

REACTIONS (8)
  - Application site irritation [Unknown]
  - Application site inflammation [Unknown]
  - Drug ineffective [Unknown]
  - Application site wound [Unknown]
  - Dental caries [Unknown]
  - Application site erythema [Unknown]
  - Application site pain [Unknown]
  - Product adhesion issue [Unknown]
